FAERS Safety Report 7619960-0 (Version None)
Quarter: 2011Q3

REPORT INFORMATION
  Report Type: 
  Country: None (occurrence: None)
  Receive Date: 20110719
  Receipt Date: 20110714
  Transmission Date: 20111222
  Serious: Yes (Death, Life-Threatening)
  Sender: FDA-Public Use
  Company Number: GB-TEVA-285467ISR

PATIENT
  Age: 27 Year
  Sex: Male

DRUGS (1)
  1. GABAPENTIN [Suspect]

REACTIONS (2)
  - TOXICITY TO VARIOUS AGENTS [None]
  - DRUG ABUSE [None]
